FAERS Safety Report 21253402 (Version 5)
Quarter: 2023Q1

REPORT INFORMATION
  Report Type: Spontaneous
  Country: US (occurrence: US)
  Receive Date: 20220825
  Receipt Date: 20230126
  Transmission Date: 20230418
  Serious: No
  Sender: FDA-Public Use
  Company Number: US-PFIZER INC-PV202200049644

PATIENT
  Age: 54 Year
  Sex: Female

DRUGS (2)
  1. XELJANZ XR [Suspect]
     Active Substance: TOFACITINIB CITRATE
     Indication: Rheumatoid arthritis
     Dosage: 11 MG
     Dates: start: 20220801, end: 202208
  2. XELJANZ XR [Suspect]
     Active Substance: TOFACITINIB CITRATE
     Dosage: 11 MG
     Dates: start: 20220812, end: 20221015

REACTIONS (15)
  - Drug ineffective [Unknown]
  - COVID-19 [Unknown]
  - Cough [Unknown]
  - Memory impairment [Unknown]
  - Product dose omission in error [Unknown]
  - Pain [Unknown]
  - Fatigue [Unknown]
  - Abdominal pain upper [Unknown]
  - Pharyngeal mass [Unknown]
  - Odynophagia [Unknown]
  - Tachycardia [Unknown]
  - Skin disorder [Unknown]
  - Erythema [Unknown]
  - Pruritus [Unknown]
  - Dyspepsia [Unknown]

NARRATIVE: CASE EVENT DATE: 20220101
